FAERS Safety Report 5929228-6 (Version None)
Quarter: 2008Q4

REPORT INFORMATION
  Report Type: 
  Country: None (occurrence: None)
  Receive Date: 20081023
  Receipt Date: 20081023
  Transmission Date: 20090506
  Serious: Yes (Hospitalization)
  Sender: FDA-Public Use
  Company Number: None

PATIENT
  Age: 57 Year
  Sex: Male

DRUGS (1)
  1. PHENYTOIN [Suspect]
     Indication: MENTAL STATUS CHANGES
     Dosage: 300 MG AT BEDTIME PO
     Route: 048
     Dates: start: 19980123, end: 20081003

REACTIONS (4)
  - ABNORMAL BEHAVIOUR [None]
  - ANTICONVULSANT DRUG LEVEL ABNORMAL [None]
  - CONFUSIONAL STATE [None]
  - MENTAL STATUS CHANGES [None]
